FAERS Safety Report 4329462-5 (Version None)
Quarter: 2004Q1

REPORT INFORMATION
  Report Type: 
  Country: None (occurrence: None)
  Receive Date: 20040331
  Receipt Date: 20040331
  Transmission Date: 20041129
  Serious: Yes (Death)
  Sender: FDA-Public Use
  Company Number: None

PATIENT
  Age: 40 Year
  Sex: Male
  Weight: 79.3795 kg

DRUGS (2)
  1. CELEXA [Suspect]
     Indication: DEPRESSION
     Dates: start: 20031218, end: 20040113
  2. CELEXA [Suspect]
     Indication: POST-TRAUMATIC STRESS DISORDER
     Dates: start: 20031218, end: 20040113

REACTIONS (1)
  - COMPLETED SUICIDE [None]
